FAERS Safety Report 13958184 (Version 1)
Quarter: 2017Q3

REPORT INFORMATION
  Report Type: Spontaneous
  Country: US (occurrence: US)
  Receive Date: 20170912
  Receipt Date: 20170912
  Transmission Date: 20171128
  Serious: Yes (Hospitalization, Other)
  Sender: FDA-Public Use
  Company Number: US-JNJFOC-20170902446

PATIENT
  Age: 18 Year
  Sex: Female

DRUGS (4)
  1. IBUPROFEN. [Suspect]
     Active Substance: IBUPROFEN
     Indication: PRODUCT USED FOR UNKNOWN INDICATION
     Route: 048
  2. IRON [Suspect]
     Active Substance: IRON
     Indication: PRODUCT USED FOR UNKNOWN INDICATION
     Route: 048
  3. MIDOL COMPLETE [Suspect]
     Active Substance: ACETAMINOPHEN\CAFFEINE\PYRILAMINE MALEATE
     Indication: PRODUCT USED FOR UNKNOWN INDICATION
     Route: 048
  4. IBUPROFEN. [Suspect]
     Active Substance: IBUPROFEN
     Route: 048

REACTIONS (11)
  - International normalised ratio increased [Recovered/Resolved]
  - Drug-induced liver injury [Recovered/Resolved]
  - Haemorrhage [Recovered/Resolved]
  - Renal failure [Recovered/Resolved]
  - Seizure [Recovered/Resolved]
  - Bacteraemia [Recovered/Resolved]
  - Brain oedema [Recovered/Resolved]
  - Thrombocytopenia [Recovered/Resolved]
  - Encephalopathy [Recovered/Resolved]
  - Decerebrate posture [Recovered/Resolved]
  - Acute hepatic failure [Recovered/Resolved]
